FAERS Safety Report 26116613 (Version 1)
Quarter: 2025Q4

REPORT INFORMATION
  Report Type: Spontaneous
  Country: GB (occurrence: GB)
  Receive Date: 20251203
  Receipt Date: 20251203
  Transmission Date: 20260118
  Serious: Yes (Life-Threatening, Hospitalization, Other)
  Sender: CELLTRION
  Company Number: GB-CELLTRION INC.-2025GB043249

PATIENT

DRUGS (1)
  1. INFLIXIMAB [Suspect]
     Active Substance: INFLIXIMAB
     Indication: Crohn^s disease
     Dosage: FOUR BIMONTHLY

REACTIONS (8)
  - Cardiac tamponade [Unknown]
  - Pericarditis tuberculous [Unknown]
  - Pericardial effusion [Unknown]
  - Left ventricular failure [Unknown]
  - Dermatitis exfoliative generalised [Unknown]
  - Tuberculous pleurisy [Unknown]
  - Lymph node tuberculosis [Unknown]
  - Tuberculosis [Unknown]
